FAERS Safety Report 6659079-9 (Version None)
Quarter: 2010Q1

REPORT INFORMATION
  Report Type: 
  Country: None (occurrence: None)
  Receive Date: 20100330
  Receipt Date: 20100323
  Transmission Date: 20100710
  Serious: Yes (Other)
  Sender: FDA-Public Use
  Company Number: US-BAYER-201017562NA

PATIENT
  Sex: Female

DRUGS (3)
  1. YAZ [Suspect]
     Indication: CONTRACEPTION
     Route: 048
  2. YASMIN [Suspect]
     Indication: CONTRACEPTION
     Route: 048
  3. OCELLA [Suspect]
     Indication: CONTRACEPTION

REACTIONS (2)
  - GALLBLADDER DISORDER [None]
  - ORGAN FAILURE [None]
